FAERS Safety Report 8458534-9 (Version None)
Quarter: 2012Q2

REPORT INFORMATION
  Report Type: 
  Country: None (occurrence: None)
  Receive Date: 20120622
  Receipt Date: 20120614
  Transmission Date: 20120825
  Serious: Yes (Other)
  Sender: FDA-Public Use
  Company Number: US-AMGEN-USASP2012027496

PATIENT
  Age: 66 Year
  Sex: Female
  Weight: 100.68 kg

DRUGS (9)
  1. ATIVAN [Concomitant]
  2. PROLIA [Suspect]
     Indication: OSTEOPOROSIS POSTMENOPAUSAL
     Dosage: 60 MG, ONE TIME DOSE
     Route: 058
     Dates: start: 20120328, end: 20120328
  3. HYDROCHLOROTHIAZIDE [Concomitant]
     Indication: HYPERTENSION
     Dosage: 25 MG, UNK
     Route: 048
  4. OMEPRAZOLE [Concomitant]
     Indication: GASTRITIS
     Dosage: 20 MG, UNK
     Route: 048
  5. HYDROCODONE BITARTRATE [Concomitant]
     Indication: RASH
     Dosage: UNK UNK, PRN
     Route: 048
  6. VASOTEC [Concomitant]
     Indication: HYPERTENSION
     Dosage: 20 MG, BID
     Route: 048
  7. LORTAB [Concomitant]
  8. PHENTERMINE [Concomitant]
     Indication: DECREASED APPETITE
  9. BYSTOLIC [Concomitant]
     Indication: HYPERTENSION
     Dosage: 10 MG, UNK

REACTIONS (3)
  - RASH [None]
  - PRURITUS [None]
  - URTICARIA [None]
